FAERS Safety Report 13486630 (Version 2)
Quarter: 2017Q2

REPORT INFORMATION
  Report Type: Spontaneous
  Country: US (occurrence: US)
  Receive Date: 20170426
  Receipt Date: 20170502
  Transmission Date: 20170830
  Serious: No
  Sender: FDA-Public Use
  Company Number: US-PFIZER INC-2017182923

PATIENT
  Age: 58 Year
  Sex: Female

DRUGS (1)
  1. MEDROL [Suspect]
     Active Substance: METHYLPREDNISOLONE
     Indication: BACK PAIN
     Dosage: UNK

REACTIONS (1)
  - Drug ineffective for unapproved indication [Unknown]
